FAERS Safety Report 25980565 (Version 1)
Quarter: 2025Q4

REPORT INFORMATION
  Report Type: Spontaneous
  Country: EU (occurrence: EU)
  Receive Date: 20251030
  Receipt Date: 20251030
  Transmission Date: 20260117
  Serious: Yes (Other)
  Sender: INCYTE
  Company Number: EU-002147023-NVSC2025HU164998

PATIENT
  Age: 77 Year

DRUGS (2)
  1. RUXOLITINIB [Suspect]
     Active Substance: RUXOLITINIB
     Indication: Myeloproliferative neoplasm
     Dosage: 10 MG (2X)
     Route: 065
  2. RUXOLITINIB [Suspect]
     Active Substance: RUXOLITINIB
     Dosage: 20 MG (2X)
     Route: 065

REACTIONS (6)
  - Granulomatous lymphadenitis [Recovered/Resolved]
  - Mycobacterium tuberculosis complex test positive [Unknown]
  - Weight increased [Unknown]
  - Lymph node rupture [Recovered/Resolved]
  - Fistula [Recovered/Resolved]
  - Red blood cell count decreased [Unknown]
